FAERS Safety Report 8234207-2 (Version None)
Quarter: 2012Q1

REPORT INFORMATION
  Report Type: 
  Country: None (occurrence: None)
  Receive Date: 20120307
  Receipt Date: 20101025
  Transmission Date: 20120608
  Serious: No
  Sender: FDA-Public Use
  Company Number: PHHY2010US72147

PATIENT
  Age: 67 Year
  Sex: Male

DRUGS (1)
  1. AFINITOR [Suspect]
     Indication: RENAL CANCER METASTATIC
     Dosage: 5 MG, QOD

REACTIONS (4)
  - OEDEMA [None]
  - ANAEMIA [None]
  - FATIGUE [None]
  - NAUSEA [None]
